FAERS Safety Report 12925406 (Version 2)
Quarter: 2016Q4

REPORT INFORMATION
  Report Type: Report from Study
  Country: DK (occurrence: DK)
  Receive Date: 20161109
  Receipt Date: 20161205
  Transmission Date: 20170207
  Serious: Yes (Other)
  Sender: FDA-Public Use
  Company Number: DK-EISAI MEDICAL RESEARCH-EC-2016-016965

PATIENT
  Age: 37 Year
  Sex: Female
  Weight: 69 kg

DRUGS (7)
  1. FYCOMPA [Suspect]
     Active Substance: PERAMPANEL
     Dates: start: 20160124, end: 20160214
  2. FYCOMPA [Suspect]
     Active Substance: PERAMPANEL
     Dates: start: 20160215, end: 20160228
  3. LEVETIRACETAM. [Concomitant]
     Active Substance: LEVETIRACETAM
  4. FYCOMPA [Suspect]
     Active Substance: PERAMPANEL
     Dates: start: 20160301, end: 20160911
  5. FYCOMPA [Suspect]
     Active Substance: PERAMPANEL
     Dates: start: 20160912, end: 20161009
  6. FYCOMPA [Suspect]
     Active Substance: PERAMPANEL
     Indication: PARTIAL SEIZURES
     Dates: start: 20160104, end: 20160123
  7. ZEBINIX [Concomitant]
     Active Substance: ESLICARBAZEPINE ACETATE

REACTIONS (9)
  - Suicidal ideation [Recovered/Resolved]
  - Anxiety [Recovering/Resolving]
  - Arthralgia [Recovering/Resolving]
  - Drug ineffective [Recovering/Resolving]
  - Mood altered [Recovering/Resolving]
  - Depression [Recovering/Resolving]
  - Fatigue [Recovering/Resolving]
  - Accidental overdose [Recovered/Resolved]
  - Limb discomfort [Recovered/Resolved]

NARRATIVE: CASE EVENT DATE: 2016
